FAERS Safety Report 8201253-4 (Version None)
Quarter: 2012Q1

REPORT INFORMATION
  Report Type: 
  Country: None (occurrence: None)
  Receive Date: 20120312
  Receipt Date: 20120306
  Transmission Date: 20120608
  Serious: Yes (Other)
  Sender: FDA-Public Use
  Company Number: PHHY2012AU019604

PATIENT
  Sex: Female

DRUGS (2)
  1. CLOZARIL [Suspect]
     Dosage: UNK MG, UNK
     Dates: start: 20120119, end: 20120204
  2. CLOZAPINE [Suspect]
     Dosage: 100 MG, UNK
     Dates: start: 20120119, end: 20120302

REACTIONS (3)
  - SEDATION [None]
  - DRUG INEFFECTIVE [None]
  - CARDIAC DISORDER [None]
